FAERS Safety Report 5953787-0 (Version None)
Quarter: 2008Q4

REPORT INFORMATION
  Report Type: 
  Country: None (occurrence: None)
  Receive Date: 20081114
  Receipt Date: 20081104
  Transmission Date: 20090506
  Serious: Yes (Other)
  Sender: FDA-Public Use
  Company Number: HU-PFIZER INC-2008093424

PATIENT
  Sex: Female

DRUGS (2)
  1. XANAX [Suspect]
     Indication: DEPRESSION
     Route: 048
     Dates: start: 20070801
  2. CITALOPRAM HYDROBROMIDE [Suspect]
     Indication: DEPRESSION
     Route: 048
     Dates: start: 20070801, end: 20080201

REACTIONS (1)
  - HALLUCINATION, VISUAL [None]
